FAERS Safety Report 15479967 (Version 1)
Quarter: 2018Q4

REPORT INFORMATION
  Report Type: Spontaneous
  Country: US (occurrence: US)
  Receive Date: 20181009
  Receipt Date: 20181009
  Transmission Date: 20190205
  Serious: Yes (Hospitalization, Other)
  Sender: FDA-Public Use
  Company Number: US-GILEAD-2018-0366427

PATIENT
  Age: 51 Year
  Sex: Male

DRUGS (2)
  1. EPCLUSA [Suspect]
     Active Substance: SOFOSBUVIR\VELPATASVIR
     Indication: HEPATITIS C
     Dosage: 1 DF, QD
     Route: 065
     Dates: start: 20180817
  2. RIBAVIRIN. [Suspect]
     Active Substance: RIBAVIRIN
     Indication: HEPATITIS C
     Dosage: 200 MG, BID
     Route: 065
     Dates: start: 20180817

REACTIONS (5)
  - Shock [Unknown]
  - Abdominal pain upper [Unknown]
  - Vomiting [Recovering/Resolving]
  - Sepsis [Unknown]
  - Weight increased [Unknown]

NARRATIVE: CASE EVENT DATE: 2018
